FAERS Safety Report 17770910 (Version 2)
Quarter: 2021Q1

REPORT INFORMATION
  Report Type: Spontaneous
  Country: GB (occurrence: GB)
  Receive Date: 20200512
  Receipt Date: 20210301
  Transmission Date: 20210419
  Serious: Yes (Other)
  Sender: FDA-Public Use
  Company Number: GB-PFIZER INC-2020185575

PATIENT
  Age: 11 Year
  Sex: Male

DRUGS (2)
  1. TOLTERODINE TARTRATE. [Suspect]
     Active Substance: TOLTERODINE TARTRATE
     Indication: ENURESIS
     Dosage: 1 MG
     Route: 048
     Dates: start: 2018, end: 20200323
  2. DESMOPRESSIN ACETATE. [Concomitant]
     Active Substance: DESMOPRESSIN ACETATE
     Indication: ENURESIS
     Dosage: UNK
     Dates: start: 2017

REACTIONS (7)
  - Off label use [Unknown]
  - Personality change [Recovered/Resolved with Sequelae]
  - Disturbance in social behaviour [Recovered/Resolved with Sequelae]
  - Product use issue [Unknown]
  - Emotional disorder of childhood [Recovered/Resolved with Sequelae]
  - Depressed mood [Recovered/Resolved with Sequelae]
  - Crying [Recovered/Resolved with Sequelae]

NARRATIVE: CASE EVENT DATE: 2018
